FAERS Safety Report 22374841 (Version 8)
Quarter: 2023Q4

REPORT INFORMATION
  Report Type: Report from Study
  Country: US (occurrence: US)
  Receive Date: 20230527
  Receipt Date: 20231013
  Transmission Date: 20240110
  Serious: No
  Sender: FDA-Public Use
  Company Number: US-002147023-NVSC2023US117413

PATIENT
  Age: 41 Year
  Sex: Female

DRUGS (2)
  1. KESIMPTA [Suspect]
     Active Substance: OFATUMUMAB
     Indication: Multiple sclerosis
     Dosage: UNK UNK, QW
     Route: 065
     Dates: start: 20230516
  2. KESIMPTA [Suspect]
     Active Substance: OFATUMUMAB
     Dosage: 20 MG, QMO
     Route: 058

REACTIONS (14)
  - Malaise [Recovered/Resolved]
  - Hypoaesthesia [Not Recovered/Not Resolved]
  - Movement disorder [Recovered/Resolved]
  - Pyrexia [Recovered/Resolved]
  - Brain fog [Unknown]
  - Electric shock sensation [Unknown]
  - Bronchitis [Recovered/Resolved]
  - Urinary tract infection [Recovered/Resolved]
  - Memory impairment [Unknown]
  - Decreased appetite [Unknown]
  - Product supply issue [Unknown]
  - Inappropriate schedule of product administration [Unknown]
  - Wrong technique in device usage process [Recovered/Resolved]
  - Incorrect dose administered [Unknown]

NARRATIVE: CASE EVENT DATE: 20230516
